FAERS Safety Report 15575128 (Version 1)
Quarter: 2018Q4

REPORT INFORMATION
  Report Type: Spontaneous
  Country: US (occurrence: US)
  Receive Date: 20181101
  Receipt Date: 20181101
  Transmission Date: 20190205
  Serious: Yes (Hospitalization, Other)
  Sender: FDA-Public Use
  Company Number: US-GILEAD-2018-0370904

PATIENT
  Age: 62 Year
  Sex: Male

DRUGS (1)
  1. YESCARTA [Suspect]
     Active Substance: AXICABTAGENE CILOLEUCEL
     Indication: LYMPHOMA TRANSFORMATION
     Dosage: SINGLE
     Route: 042
     Dates: start: 201804, end: 201804

REACTIONS (7)
  - Neutrophil count decreased [Recovered/Resolved]
  - Cytopenia [Recovered/Resolved]
  - Leukopenia [Recovered/Resolved]
  - Tachycardia [Recovered/Resolved]
  - Atrial flutter [Recovered/Resolved]
  - Agranulocytosis [Recovered/Resolved]
  - Neutropenia [Recovered/Resolved]

NARRATIVE: CASE EVENT DATE: 2018
